FAERS Safety Report 9997215 (Version 1)
Quarter: 2014Q1

REPORT INFORMATION
  Report Type: Spontaneous
  Country: US (occurrence: US)
  Receive Date: 20140311
  Receipt Date: 20140311
  Transmission Date: 20141002
  Serious: No
  Sender: FDA-Public Use
  Company Number: US-GLAXOSMITHKLINE-A1024071A

PATIENT
  Age: 45 Year
  Sex: Female

DRUGS (5)
  1. NICORETTE FRUIT CHILL OTC 2MG [Suspect]
     Indication: EX-TOBACCO USER
     Dates: start: 2013
  2. ZONISAMIDE [Concomitant]
  3. PROVENTIL [Concomitant]
  4. UNSPECIFIED MEDICATION [Concomitant]
  5. SYMBICORT [Concomitant]

REACTIONS (5)
  - Drug ineffective [Recovering/Resolving]
  - Condition aggravated [Not Recovered/Not Resolved]
  - Insomnia [Not Recovered/Not Resolved]
  - Dysgeusia [Not Recovered/Not Resolved]
  - Nervousness [Not Recovered/Not Resolved]
